FAERS Safety Report 24691453 (Version 1)
Quarter: 2024Q4

REPORT INFORMATION
  Report Type: Spontaneous
  Country: US (occurrence: None)
  Receive Date: 20241203
  Receipt Date: 20241203
  Transmission Date: 20250115
  Serious: Yes (Other)
  Sender: Public
  Company Number: None

PATIENT
  Age: 63 Year
  Sex: Female
  Weight: 55.35 kg

DRUGS (2)
  1. REFRESH OPTIVE ADVANCED [Suspect]
     Active Substance: CARBOXYMETHYLCELLULOSE SODIUM\GLYCERIN\POLYSORBATE 80
     Indication: Cataract operation
     Dosage: FREQUENCY : AS NEEDED;?
     Route: 047
     Dates: start: 20241115, end: 20241120
  2. VITAMINS [Concomitant]
     Active Substance: VITAMINS

REACTIONS (4)
  - Eye irritation [None]
  - Vision blurred [None]
  - Eye irritation [None]
  - Ocular hyperaemia [None]

NARRATIVE: CASE EVENT DATE: 20241120
